FAERS Safety Report 21989039 (Version 1)
Quarter: 2023Q1

REPORT INFORMATION
  Report Type: Spontaneous
  Country: US (occurrence: None)
  Receive Date: 20230214
  Receipt Date: 20230214
  Transmission Date: 20230418
  Serious: Yes (Other)
  Sender: FDA-Public Use
  Company Number: US-MLMSERVICE-20230127-4067068-1

PATIENT
  Age: 57 Year
  Sex: Male

DRUGS (2)
  1. FLUTICASONE PROPIONATE [Suspect]
     Active Substance: FLUTICASONE PROPIONATE
     Indication: Chronic obstructive pulmonary disease
     Dosage: UNKNOWN
  2. CROMOLYN [Suspect]
     Active Substance: CROMOLYN
     Indication: Chronic obstructive pulmonary disease
     Dosage: UNKNOWN

REACTIONS (2)
  - Phaeochromocytoma [Unknown]
  - Condition aggravated [Unknown]
